FAERS Safety Report 6036430-4 (Version None)
Quarter: 2009Q1

REPORT INFORMATION
  Report Type: 
  Country: None (occurrence: None)
  Receive Date: 20090112
  Receipt Date: 20090105
  Transmission Date: 20090719
  Serious: No
  Sender: FDA-Public Use
  Company Number: 20096060

PATIENT
  Age: 29 Year
  Sex: Male

DRUGS (1)
  1. LIORESAL [Suspect]
     Indication: MUSCLE SPASTICITY
     Dosage: 99.93 MCG, DAILY, INTRATHECAL
     Route: 037

REACTIONS (1)
  - DEVICE RELATED INFECTION [None]
